FAERS Safety Report 11222259 (Version 1)
Quarter: 2015Q2

REPORT INFORMATION
  Report Type: Spontaneous
  Country: DK (occurrence: DK)
  Receive Date: 20150626
  Receipt Date: 20150626
  Transmission Date: 20150821
  Serious: Yes (Other)
  Sender: FDA-Public Use
  Company Number: DK-TEVA-572223ISR

PATIENT
  Age: 29 Year
  Sex: Male

DRUGS (3)
  1. ETOPOSIDE. [Suspect]
     Active Substance: ETOPOSIDE
     Indication: TESTIS CANCER
     Dates: start: 20040706
  2. CISPLATIN ^HOSPIRA^ [Suspect]
     Active Substance: CISPLATIN
     Indication: TESTIS CANCER
     Dates: start: 20040706
  3. BLEOMYCIN ^BAXTER^ [Suspect]
     Active Substance: BLEOMYCIN SULFATE
     Indication: TESTIS CANCER
     Dates: start: 20040706

REACTIONS (15)
  - Hypertension [Not Recovered/Not Resolved]
  - Protein urine [None]
  - Treatment noncompliance [None]
  - Renal impairment [Not Recovered/Not Resolved]
  - Back pain [Unknown]
  - Fatigue [Not Recovered/Not Resolved]
  - Anaemia [Not Recovered/Not Resolved]
  - Haemorrhoidal haemorrhage [None]
  - Musculoskeletal discomfort [None]
  - Chronic kidney disease [None]
  - Drug dose omission [None]
  - General physical health deterioration [None]
  - Visual impairment [None]
  - Blood creatinine increased [Not Recovered/Not Resolved]
  - Dizziness [Unknown]

NARRATIVE: CASE EVENT DATE: 20050216
